FAERS Safety Report 10346870 (Version 1)
Quarter: 2014Q3

REPORT INFORMATION
  Report Type: Spontaneous
  Country: US (occurrence: None)
  Receive Date: 20140725
  Receipt Date: 20140725
  Transmission Date: 20150326
  Serious: Yes (Disabling)
  Sender: FDA-Public Use
  Company Number: None

PATIENT
  Age: 59 Year
  Sex: Male
  Weight: 108.86 kg

DRUGS (1)
  1. HUMIRA [Suspect]
     Active Substance: ADALIMUMAB
     Indication: PSORIASIS
     Dosage: 1 SHOT EVERY TWO WEEKS INTO THE MUSCLE
     Route: 030
     Dates: start: 20081103

REACTIONS (4)
  - Tongue disorder [None]
  - Dysgraphia [None]
  - Cranial nerve disorder [None]
  - Gait disturbance [None]

NARRATIVE: CASE EVENT DATE: 20130401
